FAERS Safety Report 21963359 (Version 2)
Quarter: 2023Q1

REPORT INFORMATION
  Report Type: Spontaneous
  Country: US (occurrence: US)
  Receive Date: 20230207
  Receipt Date: 20230223
  Transmission Date: 20230417
  Serious: Yes (Life-Threatening)
  Sender: FDA-Public Use
  Company Number: US-PFIZER INC-202300046407

PATIENT
  Age: 77 Year
  Sex: Male

DRUGS (1)
  1. FRAGMIN [Suspect]
     Active Substance: DALTEPARIN SODIUM
     Indication: Thrombosis prophylaxis
     Dosage: 5000IU/2 ML, CYCLIC (UNDER SKIN ONE TIME DAILY FOR 14 DAYS)
     Route: 058

REACTIONS (4)
  - Drug dose omission by device [Unknown]
  - Device issue [Unknown]
  - Device operational issue [Unknown]
  - Device leakage [Unknown]
